FAERS Safety Report 13790942 (Version 1)
Quarter: 2017Q3

REPORT INFORMATION
  Report Type: Spontaneous
  Country: US (occurrence: US)
  Receive Date: 20170725
  Receipt Date: 20170725
  Transmission Date: 20171127
  Serious: Yes (Other)
  Sender: FDA-Public Use
  Company Number: US-ASTRAZENECA-2017SE73789

PATIENT
  Sex: Female

DRUGS (16)
  1. LANOXIN [Concomitant]
     Active Substance: DIGOXIN
  2. NORVASC [Suspect]
     Active Substance: AMLODIPINE BESYLATE
     Dosage: NON-AZ
     Route: 065
     Dates: start: 20090804
  3. RANIBIZUMAB. [Concomitant]
     Active Substance: RANIBIZUMAB
     Dosage: ONE INJECTION MONTHLY
  4. MIRALAX [Concomitant]
     Active Substance: POLYETHYLENE GLYCOL 3350
     Indication: CONSTIPATION
  5. COUMADIN [Concomitant]
     Active Substance: WARFARIN SODIUM
  6. TENORMIN [Suspect]
     Active Substance: ATENOLOL
     Route: 048
  7. FAMOTIDINE. [Concomitant]
     Active Substance: FAMOTIDINE
     Indication: GASTROOESOPHAGEAL REFLUX DISEASE
     Dosage: ONE TABLET TWO TIMES A DAY TAKEN AT LUNCH TIME AND AT BED TIME
     Route: 048
     Dates: start: 20131030
  8. CARDIZEM CD [Concomitant]
     Active Substance: DILTIAZEM HYDROCHLORIDE
  9. TOPROL XL [Suspect]
     Active Substance: METOPROLOL SUCCINATE
     Route: 048
     Dates: start: 20090804
  10. ANUSOL-HC [Concomitant]
     Dosage: ONE PER RECTUM TWO TIMES A DAY FOR 14 DAYS
     Dates: start: 20130808
  11. ATIVAN [Concomitant]
     Active Substance: LORAZEPAM
  12. DEXILANT [Suspect]
     Active Substance: DEXLANSOPRAZOLE
     Dosage: ONE CAPSULE EVERDAY 30 MINUTES AFTER MEALS
     Route: 048
     Dates: start: 20160222
  13. PRILOSEC [Suspect]
     Active Substance: OMEPRAZOLE MAGNESIUM
     Route: 048
  14. PROTONIX [Suspect]
     Active Substance: PANTOPRAZOLE SODIUM
     Indication: GASTROOESOPHAGEAL REFLUX DISEASE
     Dosage: ONE TABLET TWO TIMES A DAY 30 MINUTES AFTER MEALS
     Route: 048
     Dates: start: 20121001
  15. TIKOSYN [Suspect]
     Active Substance: DOFETILIDE
     Route: 065
  16. MIRALAX [Concomitant]
     Active Substance: POLYETHYLENE GLYCOL 3350
     Indication: CONSTIPATION
     Dosage: 17 GM IN 8 OZ OF WATER DAILY
     Route: 048
     Dates: start: 20150625

REACTIONS (14)
  - Insomnia [Unknown]
  - Macular degeneration [Unknown]
  - Atrial fibrillation [Unknown]
  - Drug hypersensitivity [Unknown]
  - Dyspnoea exertional [Unknown]
  - Abdominal pain [Unknown]
  - Diarrhoea [Unknown]
  - Depression [Unknown]
  - Hiatus hernia [Unknown]
  - Nocturia [Unknown]
  - Colon adenoma [Unknown]
  - Visual impairment [Unknown]
  - Diverticulum [Unknown]
  - Nightmare [Unknown]
